FAERS Safety Report 9421435 (Version 1)
Quarter: 2013Q3

REPORT INFORMATION
  Report Type: Spontaneous
  Country: RU (occurrence: RU)
  Receive Date: 20130726
  Receipt Date: 20130726
  Transmission Date: 20140515
  Serious: Yes (Other)
  Sender: FDA-Public Use
  Company Number: RU-PFIZER INC-2013209166

PATIENT
  Sex: Female

DRUGS (17)
  1. DOXORUBICIN HCL [Suspect]
     Indication: HODGKIN^S DISEASE
     Dosage: 25 MG/M^2 (FIRST DAY)
  2. DOXORUBICIN HCL [Suspect]
     Indication: CHRONIC MYELOID LEUKAEMIA
  3. ETOPOSIDE [Suspect]
     Indication: HODGKIN^S DISEASE
     Dosage: 100 MG/M^2 (1ST TO 3RD DAYS)
  4. ETOPOSIDE [Suspect]
     Indication: CHRONIC MYELOID LEUKAEMIA
  5. VINCRISTINE SULFATE [Suspect]
     Indication: HODGKIN^S DISEASE
     Dosage: 2 MG, 1X/DAY (8TH DAY)
  6. VINCRISTINE SULFATE [Suspect]
     Indication: CHRONIC MYELOID LEUKAEMIA
  7. IMATINIB [Suspect]
     Indication: HODGKIN^S DISEASE
     Dosage: 400 MG, 1X/DAY
  8. IMATINIB [Suspect]
     Indication: CHRONIC MYELOID LEUKAEMIA
     Dosage: 600 MG, 1X/DAY
  9. IMATINIB [Suspect]
     Dosage: 800 MG, 1X/DAY
  10. BLEOMYCIN [Suspect]
     Indication: HODGKIN^S DISEASE
     Dosage: 10 MG/M^2 (8TH DAY)
  11. BLEOMYCIN [Suspect]
     Indication: CHRONIC MYELOID LEUKAEMIA
  12. CYCLOPHOSPHAN [Suspect]
     Indication: HODGKIN^S DISEASE
     Dosage: 650 MG/M^2 ON THE FIRST DAY
  13. CYCLOPHOSPHAN [Suspect]
     Indication: CHRONIC MYELOID LEUKAEMIA
  14. PREDNISOLONE [Suspect]
     Indication: HODGKIN^S DISEASE
     Dosage: 80 MG/M^2 (1ST TO 7TH DAYS)
  15. PREDNISOLONE [Suspect]
     Indication: CHRONIC MYELOID LEUKAEMIA
  16. DACARBAZINE [Suspect]
     Indication: CHRONIC MYELOID LEUKAEMIA
     Dosage: 600 MG, 1X/DAY (THE FIRST DAY)
  17. DACARBAZINE [Suspect]
     Indication: HODGKIN^S DISEASE

REACTIONS (6)
  - Pneumonia [Recovered/Resolved]
  - Neutropenia [Unknown]
  - Glucose tolerance decreased [Unknown]
  - Cystitis [Recovered/Resolved]
  - Mouth ulceration [Recovered/Resolved]
  - Leukopenia [Unknown]
